APPROVED DRUG PRODUCT: LOPERAMIDE HYDROCHLORIDE
Active Ingredient: LOPERAMIDE HYDROCHLORIDE
Strength: 2MG
Dosage Form/Route: TABLET;ORAL
Application: A076497 | Product #001
Applicant: LNK INTERNATIONAL INC
Approved: Jun 10, 2003 | RLD: No | RS: No | Type: OTC